FAERS Safety Report 10052727 (Version 2)
Quarter: 2014Q2

REPORT INFORMATION
  Report Type: Spontaneous
  Country: CZ (occurrence: CZ)
  Receive Date: 20140402
  Receipt Date: 20140414
  Transmission Date: 20141212
  Serious: Yes (Other)
  Sender: FDA-Public Use
  Company Number: CZ-PFIZER INC-2014089795

PATIENT
  Sex: Female

DRUGS (10)
  1. NEURONTIN [Suspect]
     Dosage: 300 MG, 1X/DAY
     Dates: start: 201111
  2. NEURONTIN [Suspect]
     Dosage: 300 MG, IN THE EVENING
     Dates: start: 2012
  3. NEURONTIN [Suspect]
     Dosage: 300 MG, 3X/DAY
     Dates: start: 201402
  4. GODASAL [Concomitant]
     Dosage: 100 MG, IN THE MORNING
  5. DICLOFENAC [Concomitant]
     Dosage: 50 MG, IN THE MORNING
  6. PREDNISONE [Concomitant]
     Dosage: 5 MG, IN THE MORNING
  7. ZOCOR FORTE [Concomitant]
     Dosage: 40 MG, IN THE EVENING
  8. PRESTARIUM NEO COMBI [Concomitant]
     Dosage: 2.5 MG IN THE EVENING
  9. CONDROSULF [Concomitant]
     Dosage: 800 MG / 1-2 TABLETS THREE TIMES A YEAR
  10. VIGANTOL ^BAYER^ [Concomitant]
     Dosage: 3 DROPS, 1X/DAY

REACTIONS (7)
  - Autoimmune disorder [Unknown]
  - Somnolence [Unknown]
  - Osteoarthritis [Unknown]
  - Paraesthesia [Unknown]
  - Muscular weakness [Unknown]
  - Areflexia [Unknown]
  - Skin disorder [Unknown]
